FAERS Safety Report 9594381 (Version 1)
Quarter: 2013Q4

REPORT INFORMATION
  Report Type: Spontaneous
  Country: FR (occurrence: FR)
  Receive Date: 20131004
  Receipt Date: 20131004
  Transmission Date: 20140711
  Serious: Yes (Other)
  Sender: FDA-Public Use
  Company Number: FR-ASTRAZENECA-2013SE72528

PATIENT
  Sex: Male

DRUGS (2)
  1. INEXIUM [Suspect]
     Indication: OESOPHAGITIS
     Dosage: 20 MG EVERYDAY, INTERMITENT
     Route: 048
  2. INEXIUM [Suspect]
     Indication: GASTROOESOPHAGEAL REFLUX DISEASE
     Dosage: 20 MG EVERYDAY, INTERMITENT
     Route: 048

REACTIONS (2)
  - Hypertension [Not Recovered/Not Resolved]
  - Foot fracture [Unknown]
